FAERS Safety Report 11710660 (Version 2)
Quarter: 2015Q4

REPORT INFORMATION
  Report Type: Spontaneous
  Country: US (occurrence: US)
  Receive Date: 20151104
  Receipt Date: 20151110
  Transmission Date: 20160304
  Serious: No
  Sender: FDA-Public Use
  Company Number: US-ELI_LILLY_AND_COMPANY-US201103008980

PATIENT
  Sex: Female

DRUGS (3)
  1. FORTEO [Suspect]
     Active Substance: TERIPARATIDE
     Indication: HYPOPARATHYROIDISM
     Dosage: 20 UG, QD
  2. FORTEO [Suspect]
     Active Substance: TERIPARATIDE
     Dosage: 20 UG, QD
  3. CALCIUM [Concomitant]
     Active Substance: CALCIUM

REACTIONS (8)
  - Medication error [Unknown]
  - Mass [Unknown]
  - Stress [Unknown]
  - Feeling abnormal [Unknown]
  - Off label use [Not Recovered/Not Resolved]
  - Blood calcium increased [Unknown]
  - Incorrect dose administered by device [Unknown]
  - Incorrect dose administered by device [Recovered/Resolved]

NARRATIVE: CASE EVENT DATE: 2011
